FAERS Safety Report 12746608 (Version 1)
Quarter: 2016Q3

REPORT INFORMATION
  Report Type: Spontaneous
  Country: FR (occurrence: FR)
  Receive Date: 20160915
  Receipt Date: 20160915
  Transmission Date: 20161109
  Serious: Yes (Other)
  Sender: FDA-Public Use
  Company Number: FR-009507513-1608FRA007505

PATIENT
  Age: 19 Year
  Sex: Female
  Weight: 130 kg

DRUGS (7)
  1. VALIUM [Concomitant]
     Active Substance: DIAZEPAM
     Indication: BIPOLAR DISORDER
     Dosage: UNK
  2. ABILIFY [Concomitant]
     Active Substance: ARIPIPRAZOLE
     Indication: BIPOLAR DISORDER
     Dosage: UNK
     Route: 048
  3. TERCIAN [Concomitant]
     Active Substance: CYAMEMAZINE
     Indication: BIPOLAR DISORDER
     Dosage: UNK
     Route: 048
  4. TEGRETOL [Suspect]
     Active Substance: CARBAMAZEPINE
     Indication: BIPOLAR DISORDER
     Dosage: UNK
     Route: 048
     Dates: start: 2013
  5. ANAFRANIL [Concomitant]
     Active Substance: CLOMIPRAMINE HYDROCHLORIDE
     Indication: BIPOLAR DISORDER
     Dosage: UNK
     Route: 048
  6. NEXPLANON [Suspect]
     Active Substance: ETONOGESTREL
     Dosage: 1 DF, UNK
     Route: 059
     Dates: start: 201307, end: 201502
  7. NEXPLANON [Suspect]
     Active Substance: ETONOGESTREL
     Dosage: 1 DF, UNK
     Route: 059
     Dates: start: 201502

REACTIONS (8)
  - Gestational diabetes [Unknown]
  - Wrist fracture [Unknown]
  - Induced labour [Unknown]
  - Weight increased [Unknown]
  - Pregnancy with implant contraceptive [Recovered/Resolved]
  - Device deployment issue [Recovered/Resolved]
  - Insulin resistance [Unknown]
  - Unintended pregnancy [Recovered/Resolved]

NARRATIVE: CASE EVENT DATE: 201307
